FAERS Safety Report 4467808-8 (Version None)
Quarter: 2004Q4

REPORT INFORMATION
  Report Type: 
  Country: None (occurrence: None)
  Receive Date: 20041001
  Receipt Date: 20040917
  Transmission Date: 20050328
  Serious: Yes (Other)
  Sender: FDA-Public Use
  Company Number: 2004234021JP

PATIENT
  Sex: Male

DRUGS (10)
  1. SOLU-MEDROL [Suspect]
     Indication: PERITONSILLITIS
     Dosage: 125 MG,  IV
     Route: 042
     Dates: start: 20040830
  2. VOLTAREN [Suspect]
     Dosage: ORAL
     Route: 048
     Dates: start: 20040830
  3. STRONG NEO-MINOPHAGEN C (CYSTEINE, AMINOACETIC ACID, GLYCYRRHIZIC ACID [Concomitant]
  4. MULTIVITAMIN [Concomitant]
  5. MELILOT (MELILOT) [Concomitant]
  6. FOSMICIN (FOSFOMYCIN CALCIUM) [Concomitant]
  7. MEIACT (CEFDITOREN PIVOXIL) [Concomitant]
  8. CELESTAMINE (BETAMETHASONE) [Concomitant]
  9. ADETPHOS (ADENOSINE TRIPHOSPHATE, DISODIUM SALT) [Concomitant]
  10. CYANOCOBALAMIN [Concomitant]

REACTIONS (3)
  - C-REACTIVE PROTEIN INCREASED [None]
  - HYPOTHERMIA [None]
  - WHITE BLOOD CELL COUNT INCREASED [None]
